FAERS Safety Report 8416031-0 (Version None)
Quarter: 2012Q2

REPORT INFORMATION
  Report Type: 
  Country: None (occurrence: None)
  Receive Date: 20120323
  Receipt Date: 20111221
  Transmission Date: 20120825
  Serious: Yes (Hospitalization)
  Sender: FDA-Public Use
  Company Number: 163-21880-11122977

PATIENT
  Age: 62 Year
  Sex: Female

DRUGS (9)
  1. ALKERAN [Concomitant]
  2. CALCIUM [Concomitant]
  3. REVLIMID [Suspect]
     Indication: MULTIPLE MYELOMA
     Dosage: 10 MG, 21 CAPS, PO
     Route: 048
     Dates: start: 20111128
  4. MELPHALAN HCL (MELPHALAN HYDROCHLORIDE) [Concomitant]
  5. ATENOLOL [Concomitant]
  6. ZYRTEC ALLERGY (CETIRIZINE HYDROCHLORIDE) [Concomitant]
  7. PREDNISONE TAB [Concomitant]
  8. ACIDOPHILUS (LACTOBACILLUS ACIDOPHILUS) [Concomitant]
  9. HYDROCHLOROTHIAZIDE [Concomitant]

REACTIONS (1)
  - INFECTION [None]
